FAERS Safety Report 7137682-X (Version None)
Quarter: 2010Q4

REPORT INFORMATION
  Report Type: 
  Country: None (occurrence: None)
  Receive Date: 20101119
  Receipt Date: 20101105
  Transmission Date: 20110411
  Serious: Yes (Hospitalization)
  Sender: FDA-Public Use
  Company Number: 022018

PATIENT
  Sex: Male

DRUGS (6)
  1. ISOSORBIDE DINITRATE (ISOSORBIDE DINITRATE) [Suspect]
     Indication: ANGINA PECTORIS
     Dosage: (120 MG ORAL)
     Route: 048
     Dates: start: 20050211
  2. PIOGLITAZONE [Suspect]
     Indication: TYPE 2 DIABETES MELLITUS
     Dosage: (30 MG ORAL)
     Route: 048
     Dates: start: 20081104
  3. ATORVASTATIN CALCIUM [Concomitant]
  4. LOSARTAN POTASSIUM AND HYDROCHLOROTHIAZIDE [Suspect]
     Indication: HYPERTENSION
     Dosage: 62.5MG ORAL
     Route: 048
     Dates: start: 20020301
  5. NEBIVOLOL HCL [Suspect]
     Indication: HYPERTENSION
     Dosage: 5MG ORAL
     Route: 048
     Dates: start: 20040413
  6. AMLODIPINE [Suspect]
     Indication: HYPERTENSION
     Dosage: 5 MG ORAL
     Route: 048
     Dates: start: 20021015

REACTIONS (1)
  - LOSS OF CONSCIOUSNESS [None]
